FAERS Safety Report 15864365 (Version 1)
Quarter: 2019Q1

REPORT INFORMATION
  Report Type: Report from Study
  Country: US (occurrence: US)
  Receive Date: 20190124
  Receipt Date: 20190124
  Transmission Date: 20190417
  Serious: Yes (Other)
  Sender: FDA-Public Use
  Company Number: US-GILEAD-2019-0386278

PATIENT
  Age: 74 Year
  Sex: Female

DRUGS (2)
  1. IDELALISIB [Suspect]
     Active Substance: IDELALISIB
     Indication: NON-HODGKIN^S LYMPHOMA
     Dosage: 150 MG, BID
     Route: 048
     Dates: start: 20170428, end: 20181224
  2. IDELALISIB [Suspect]
     Active Substance: IDELALISIB
     Indication: DISEASE PROGRESSION

REACTIONS (3)
  - Toxicity to various agents [Unknown]
  - Cough [Unknown]
  - Disease progression [Unknown]

NARRATIVE: CASE EVENT DATE: 2018
